FAERS Safety Report 14238233 (Version 1)
Quarter: 2017Q4

REPORT INFORMATION
  Report Type: Spontaneous
  Country: US (occurrence: None)
  Receive Date: 20171128
  Receipt Date: 20171128
  Transmission Date: 20180321
  Serious: Yes (Hospitalization)
  Sender: FDA-Public Use
  Company Number: None

PATIENT
  Age: 50 Year
  Sex: Female

DRUGS (11)
  1. FLOMAX [Concomitant]
     Active Substance: TAMSULOSIN HYDROCHLORIDE
  2. KLONOPIN [Concomitant]
     Active Substance: CLONAZEPAM
  3. DULOXETINE. [Concomitant]
     Active Substance: DULOXETINE
  4. TOPAMAX [Concomitant]
     Active Substance: TOPIRAMATE
  5. GLATOPA [Suspect]
     Active Substance: GLATIRAMER ACETATE
     Indication: MULTIPLE SCLEROSIS
     Dosage: 20MG/ML PFS INJECT 20 MG DAILY SUBCUTANEOUS
     Route: 058
     Dates: start: 20150916
  6. IMITREX [Concomitant]
     Active Substance: SUMATRIPTAN SUCCINATE
  7. ESTRADIOL. [Concomitant]
     Active Substance: ESTRADIOL
  8. ZETIA [Concomitant]
     Active Substance: EZETIMIBE
  9. ADVIL [Concomitant]
     Active Substance: IBUPROFEN
  10. CYMBALTA [Concomitant]
     Active Substance: DULOXETINE HYDROCHLORIDE
  11. OMEPRAZOLE. [Concomitant]
     Active Substance: OMEPRAZOLE

REACTIONS (3)
  - Headache [None]
  - Back pain [None]
  - Fatigue [None]
